FAERS Safety Report 7874759-5 (Version None)
Quarter: 2011Q4

REPORT INFORMATION
  Report Type: 
  Country: None (occurrence: None)
  Receive Date: 20111031
  Receipt Date: 20111017
  Transmission Date: 20120403
  Serious: Yes (Other)
  Sender: FDA-Public Use
  Company Number: RU-ELI_LILLY_AND_COMPANY-RU201110000329

PATIENT
  Age: 60 Year
  Sex: Female

DRUGS (7)
  1. BYETTA [Suspect]
     Indication: TYPE 2 DIABETES MELLITUS
     Dosage: 5 UG, UNKNOWN
     Dates: start: 20110601, end: 20110701
  2. BYETTA [Suspect]
     Dosage: 10 UG, UNKNOWN
     Dates: start: 20110701, end: 20110801
  3. LORISTA [Concomitant]
     Dosage: 100 MG, UNK
     Dates: start: 20090101
  4. AMARYL [Concomitant]
     Dosage: 6 MG, UNK
     Dates: start: 20090101
  5. BYETTA [Suspect]
     Dosage: 10 UG, EACH EVENING
     Dates: start: 20110801, end: 20110901
  6. METFORMIN HCL [Concomitant]
     Dosage: 2000 MG, UNK
     Dates: start: 20060101
  7. BYETTA [Suspect]
     Dosage: 5 UG, BID

REACTIONS (2)
  - INTENTIONAL DRUG MISUSE [None]
  - DRUG INTOLERANCE [None]
